FAERS Safety Report 19268463 (Version 2)
Quarter: 2021Q3

REPORT INFORMATION
  Report Type: Spontaneous
  Country: US (occurrence: US)
  Receive Date: 20210518
  Receipt Date: 20210809
  Transmission Date: 20211014
  Serious: No
  Sender: FDA-Public Use
  Company Number: US-BAYER-2021-142608

PATIENT
  Age: 51 Year
  Sex: Female
  Weight: 68.5 kg

DRUGS (2)
  1. BETADINE ALCOOLICO [Concomitant]
     Active Substance: POVIDONE-IODINE
     Dosage: UNK
     Dates: start: 20210604
  2. MIRENA [Suspect]
     Active Substance: LEVONORGESTREL
     Indication: CONTRACEPTION
     Dosage: 20?G PER DAY, CONTINUOUSLY
     Route: 015
     Dates: start: 20201027, end: 20210604

REACTIONS (2)
  - Device expulsion [Recovered/Resolved]
  - Post procedural discomfort [None]

NARRATIVE: CASE EVENT DATE: 2021
